FAERS Safety Report 7368697-4 (Version None)
Quarter: 2011Q1

REPORT INFORMATION
  Report Type: 
  Country: None (occurrence: None)
  Receive Date: 20110323
  Receipt Date: 20100909
  Transmission Date: 20110831
  Serious: Yes (Hospitalization, Other)
  Sender: FDA-Public Use
  Company Number: US-BAYER-201023664NA

PATIENT
  Sex: Female
  Weight: 88 kg

DRUGS (10)
  1. MIDOL LIQUID GELS [Concomitant]
  2. YASMIN [Suspect]
     Route: 048
     Dates: start: 20070801
  3. WARFARIN [Concomitant]
     Indication: DEEP VEIN THROMBOSIS
     Dosage: UNK
     Dates: start: 20080101
  4. UNKNOWN [Concomitant]
     Dosage: UNK
     Dates: start: 20100101
  5. LEVOTHYROXINE [Concomitant]
     Indication: HYPERTHYROIDISM
     Dosage: 50 MCG/24HR, UNK
     Dates: start: 20070101
  6. UNKNOWN [Concomitant]
     Indication: DIABETES MELLITUS
     Dosage: UNK
     Dates: start: 20080101
  7. DEXAMETHASONE [Concomitant]
     Indication: HYPERADRENALISM
     Dosage: 0.5 MG/24HR, UNK
     Dates: start: 20070101
  8. FENOFIBRATE [Concomitant]
     Indication: BLOOD TRIGLYCERIDES ABNORMAL
     Dosage: UNK
     Dates: start: 20090101
  9. YAZ [Suspect]
     Indication: HORMONE LEVEL ABNORMAL
     Route: 048
     Dates: start: 20070801, end: 20080401
  10. SIMVASTATIN [Concomitant]
     Indication: BLOOD CHOLESTEROL INCREASED
     Dosage: UNK
     Dates: start: 20090101

REACTIONS (6)
  - THROMBOSIS [None]
  - MENTAL DISORDER [None]
  - DEEP VEIN THROMBOSIS [None]
  - FATIGUE [None]
  - CHEST PAIN [None]
  - DYSPNOEA [None]
